FAERS Safety Report 13467279 (Version 3)
Quarter: 2017Q2

REPORT INFORMATION
  Report Type: Spontaneous
  Country: US (occurrence: US)
  Receive Date: 20170421
  Receipt Date: 20170517
  Transmission Date: 20170830
  Serious: Yes (Hospitalization, Other)
  Sender: FDA-Public Use
  Company Number: US-SAOL THERAPEUTICS-2016SAO01038

PATIENT
  Age: 51 Year
  Sex: Male
  Weight: 86.2 kg

DRUGS (17)
  1. COLACE [Concomitant]
     Active Substance: DOCUSATE SODIUM
  2. CYMBALTA [Concomitant]
     Active Substance: DULOXETINE HYDROCHLORIDE
  3. CRESTOR [Concomitant]
     Active Substance: ROSUVASTATIN CALCIUM
  4. FLOMAX [Concomitant]
     Active Substance: TAMSULOSIN HYDROCHLORIDE
  5. LAMICTAL [Concomitant]
     Active Substance: LAMOTRIGINE
  6. CITRUCEL [Concomitant]
     Active Substance: METHYLCELLULOSE (4000 MPA.S)
  7. LIORESAL [Suspect]
     Active Substance: BACLOFEN
     Dosage: 401.9 ?G, \DAY
     Dates: start: 20170103, end: 20170406
  8. LIORESAL [Suspect]
     Active Substance: BACLOFEN
     Indication: MUSCLE SPASTICITY
     Dosage: 419.97 ?G, \DAY
     Dates: start: 20170406
  9. LUNESTA [Concomitant]
     Active Substance: ESZOPICLONE
  10. GLYCOLAX [Concomitant]
     Active Substance: POLYETHYLENE GLYCOL 3350
  11. TOPROL XL [Concomitant]
     Active Substance: METOPROLOL SUCCINATE
  12. ZYRTEC [Concomitant]
     Active Substance: CETIRIZINE HYDROCHLORIDE
  13. LIORESAL [Suspect]
     Active Substance: BACLOFEN
     Indication: MUSCLE SPASTICITY
     Dosage: 300 ?G, \DAY
     Route: 037
     Dates: start: 20160825, end: 20160920
  14. LIORESAL [Suspect]
     Active Substance: BACLOFEN
     Dosage: 329.8 ?G, \DAY
     Route: 037
     Dates: start: 20160920, end: 20170103
  15. VALIUM [Concomitant]
     Active Substance: DIAZEPAM
  16. FLEXERIL [Concomitant]
     Active Substance: CYCLOBENZAPRINE HYDROCHLORIDE
  17. ANDROGEL [Concomitant]
     Active Substance: TESTOSTERONE

REACTIONS (7)
  - Muscle spasticity [Unknown]
  - Device infusion issue [Unknown]
  - Therapy non-responder [Not Recovered/Not Resolved]
  - Incorrect dose administered [Unknown]
  - Device failure [Unknown]
  - Intervertebral disc protrusion [Recovering/Resolving]
  - Back pain [Unknown]

NARRATIVE: CASE EVENT DATE: 2016
